FAERS Safety Report 10468436 (Version 2)
Quarter: 2014Q3

REPORT INFORMATION
  Report Type: Spontaneous
  Country: US (occurrence: US)
  Receive Date: 20140922
  Receipt Date: 20140922
  Transmission Date: 20150326
  Serious: No
  Sender: FDA-Public Use
  Company Number: US-ALLERGAN-1318318US

PATIENT
  Age: 72 Year
  Sex: Female

DRUGS (2)
  1. LOTEMAX [Concomitant]
     Active Substance: LOTEPREDNOL ETABONATE
     Indication: PRODUCT USED FOR UNKNOWN INDICATION
  2. LASTACAFT [Suspect]
     Active Substance: ALCAFTADINE
     Indication: GIANT PAPILLARY CONJUNCTIVITIS
     Dosage: 2 GTT, QD
     Route: 047
     Dates: start: 201309, end: 20131119

REACTIONS (6)
  - Erythema [Recovered/Resolved]
  - Skin exfoliation [Recovered/Resolved]
  - Eye discharge [Recovered/Resolved]
  - Lacrimation increased [Recovered/Resolved]
  - Scab [Recovered/Resolved]
  - Eye pain [Recovered/Resolved]

NARRATIVE: CASE EVENT DATE: 20131114
